FAERS Safety Report 4779435-3 (Version None)
Quarter: 2005Q3

REPORT INFORMATION
  Report Type: 
  Country: None (occurrence: None)
  Receive Date: 20050923
  Receipt Date: 20050915
  Transmission Date: 20060218
  Serious: Yes (Other)
  Sender: FDA-Public Use
  Company Number: SUSI-2005-00682

PATIENT
  Age: 11 Year
  Sex: Male
  Weight: 53.1 kg

DRUGS (4)
  1. ADDERALL XR 60 [Suspect]
     Indication: ATTENTION DEFICIT/HYPERACTIVITY DISORDER
     Dosage: 25 MG, 1X/DAY:QD
     Dates: start: 20050501
  2. STRATTERA [Concomitant]
  3. RISPERDAL [Concomitant]
  4. EFFEXOR [Concomitant]

REACTIONS (3)
  - DRUG LEVEL INCREASED [None]
  - FOOD INTERACTION [None]
  - LOSS OF CONSCIOUSNESS [None]
